FAERS Safety Report 11184924 (Version 1)
Quarter: 2015Q2

REPORT INFORMATION
  Report Type: Spontaneous
  Country: US (occurrence: US)
  Receive Date: 20150612
  Receipt Date: 20150612
  Transmission Date: 20150821
  Serious: Yes (Other)
  Sender: FDA-Public Use
  Company Number: US-ASTELLAS-2015US019735

PATIENT

DRUGS (1)
  1. REGADENOSON [Suspect]
     Active Substance: REGADENOSON
     Indication: OFF LABEL USE
     Dosage: UNK, UNKNOWN FREQ.
     Route: 065

REACTIONS (4)
  - Cardiac arrest [Unknown]
  - Hypotension [Unknown]
  - Arterial stenosis [Unknown]
  - Off label use [Unknown]
